FAERS Safety Report 6511256-3 (Version None)
Quarter: 2009Q4

REPORT INFORMATION
  Report Type: 
  Country: None (occurrence: None)
  Receive Date: 20091222
  Receipt Date: 20090318
  Transmission Date: 20100525
  Serious: No
  Sender: FDA-Public Use
  Company Number: US-ASTRAZENECA-2009UW07030

PATIENT
  Sex: Female
  Weight: 62.6 kg

DRUGS (2)
  1. CRESTOR [Suspect]
     Indication: BLOOD CHOLESTEROL
     Route: 048
  2. DILTIAZEM [Concomitant]

REACTIONS (2)
  - FLUSHING [None]
  - MUSCLE SPASMS [None]
